FAERS Safety Report 24554803 (Version 1)
Quarter: 2024Q4

REPORT INFORMATION
  Report Type: Spontaneous
  Country: AU (occurrence: AU)
  Receive Date: 20241028
  Receipt Date: 20241028
  Transmission Date: 20250115
  Serious: Yes (Death, Hospitalization)
  Sender: ROCHE
  Company Number: AU-ROCHE-10000111971

PATIENT
  Age: 79 Year
  Sex: Female

DRUGS (1)
  1. TOCILIZUMAB [Suspect]
     Active Substance: TOCILIZUMAB
     Indication: Giant cell arteritis
     Route: 065
     Dates: start: 202401

REACTIONS (7)
  - Abdominal pain lower [Fatal]
  - Blood lactic acid increased [Unknown]
  - Diverticular perforation [Fatal]
  - Diverticulitis [Fatal]
  - Renal failure [Fatal]
  - Tachycardia [Fatal]
  - Tachypnoea [Fatal]

NARRATIVE: CASE EVENT DATE: 20240519
